FAERS Safety Report 8106031-2 (Version None)
Quarter: 2012Q1

REPORT INFORMATION
  Report Type: 
  Country: None (occurrence: None)
  Receive Date: 20120202
  Receipt Date: 20120124
  Transmission Date: 20120608
  Serious: No
  Sender: FDA-Public Use
  Company Number: US-BIOGENIDEC-2011BI034096

PATIENT
  Age: 42 Year
  Sex: Female

DRUGS (3)
  1. AVONEX [Suspect]
     Route: 030
     Dates: start: 20110801
  2. OXYCODONE HCL [Concomitant]
     Indication: BACK PAIN
     Dates: start: 20010101
  3. AVONEX [Suspect]
     Indication: MULTIPLE SCLEROSIS
     Route: 030
     Dates: start: 20110601, end: 20110701

REACTIONS (9)
  - GENITAL PAIN [None]
  - STRESS [None]
  - VISION BLURRED [None]
  - INFLUENZA LIKE ILLNESS [None]
  - HYPOAESTHESIA [None]
  - MUSCLE SPASMS [None]
  - SENSATION OF HEAVINESS [None]
  - ANXIETY [None]
  - ALOPECIA [None]
